FAERS Safety Report 5935830-8 (Version None)
Quarter: 2008Q4

REPORT INFORMATION
  Report Type: 
  Country: None (occurrence: None)
  Receive Date: 20081030
  Receipt Date: 20081027
  Transmission Date: 20090506
  Serious: Yes (Death, Hospitalization, Other)
  Sender: FDA-Public Use
  Company Number: PHHY2008JP24946

PATIENT
  Sex: Female

DRUGS (4)
  1. CYCLOSPORINE [Suspect]
     Indication: MYASTHENIA GRAVIS CRISIS
  2. ADRENAL HORMONE PREPARATION [Concomitant]
     Indication: MYASTHENIA GRAVIS
  3. STEROIDS NOS [Concomitant]
  4. TPN [Concomitant]

REACTIONS (12)
  - CEREBRAL INFARCTION [None]
  - CYTOMEGALOVIRUS ENTEROCOLITIS [None]
  - DISSEMINATED INTRAVASCULAR COAGULATION [None]
  - DYSPHAGIA [None]
  - KLEBSIELLA INFECTION [None]
  - LARGE INTESTINAL ULCER HAEMORRHAGE [None]
  - MELAENA [None]
  - PARENTERAL NUTRITION [None]
  - PNEUMONIA ASPIRATION [None]
  - SHOCK [None]
  - STAPHYLOCOCCAL INFECTION [None]
  - TRACHEOSTOMY [None]
